FAERS Safety Report 10561737 (Version 2)
Quarter: 2014Q4

REPORT INFORMATION
  Report Type: Report from Study
  Country: US (occurrence: US)
  Receive Date: 20141103
  Receipt Date: 20141114
  Transmission Date: 20150529
  Serious: Yes (Death, Other)
  Sender: FDA-Public Use
  Company Number: US-GILEAD-2014-0120629

PATIENT
  Age: 23 Year
  Sex: Female

DRUGS (1)
  1. AZTREONAM LYSINE [Suspect]
     Active Substance: AZTREONAM LYSINE
     Indication: RESPIRATORY TRACT INFECTION BACTERIAL
     Dosage: 75 MG, UNK
     Route: 055
     Dates: start: 20130107

REACTIONS (1)
  - Respiratory failure [Fatal]
